FAERS Safety Report 9179207 (Version 1)
Quarter: 2012Q4

REPORT INFORMATION
  Report Type: Report from Study
  Country: US (occurrence: US)
  Receive Date: 20121029
  Receipt Date: 20121029
  Transmission Date: 20130627
  Serious: Yes (Hospitalization)
  Sender: FDA-Public Use
  Company Number: US-ASTELLAS-2012US010352

PATIENT
  Age: 55 None
  Sex: Male
  Weight: 79 kg

DRUGS (10)
  1. ERLOTINIB TABLET [Suspect]
     Indication: NON-SMALL CELL LUNG CANCER
     Dosage: 100 mg, UID/QD
     Route: 048
     Dates: start: 20120628, end: 20121018
  2. HYDROXYCHLOROQUINE SULFATE [Suspect]
     Indication: NON-SMALL CELL LUNG CANCER
     Dosage: 800 mg, UID/QD
     Route: 048
     Dates: start: 20120628, end: 20121018
  3. CLINDAMYCIN [Concomitant]
     Indication: PRODUCT USED FOR UNKNOWN INDICATION
     Dosage: 1 %, prn
     Route: 061
     Dates: start: 20120523
  4. SYNTHROID [Concomitant]
     Indication: PRODUCT USED FOR UNKNOWN INDICATION
     Dosage: 75 mg, UID/QD
     Route: 048
     Dates: start: 20120614
  5. OXYCODONE [Concomitant]
     Indication: PRODUCT USED FOR UNKNOWN INDICATION
     Dosage: 60 mg, daily, prn
     Route: 048
     Dates: start: 20120502
  6. ZOFRAN                             /00955302/ [Concomitant]
     Indication: PRODUCT USED FOR UNKNOWN INDICATION
     Dosage: 8 mg, prn
     Route: 048
     Dates: start: 20120515
  7. MIRALAX                            /00754501/ [Concomitant]
     Indication: PRODUCT USED FOR UNKNOWN INDICATION
     Dosage: 17 g, QD, prn
     Route: 048
     Dates: start: 201203
  8. MVI [Concomitant]
     Indication: PRODUCT USED FOR UNKNOWN INDICATION
     Dosage: UNK
     Route: 065
  9. CLOBETASOL 0.05% [Concomitant]
     Indication: PRODUCT USED FOR UNKNOWN INDICATION
     Dosage: 0.05 %, prn
     Route: 061
     Dates: start: 20120523
  10. OXYCONTIN [Concomitant]
     Indication: PRODUCT USED FOR UNKNOWN INDICATION
     Dosage: 90 mg, Q12 hours
     Route: 065
     Dates: start: 20121003

REACTIONS (2)
  - Incorrect dose administered [Unknown]
  - Back pain [Unknown]
